FAERS Safety Report 6262309-9 (Version None)
Quarter: 2009Q3

REPORT INFORMATION
  Report Type: 
  Country: None (occurrence: None)
  Receive Date: 20090709
  Receipt Date: 20090706
  Transmission Date: 20100115
  Serious: Yes (Death)
  Sender: FDA-Public Use
  Company Number: NO-BRISTOL-MYERS SQUIBB COMPANY-14690234

PATIENT
  Age: 50 Year
  Sex: Male

DRUGS (3)
  1. CISPLATIN [Suspect]
     Indication: TESTICULAR GERM CELL CANCER
  2. ETOPOSIDE [Suspect]
     Indication: TESTICULAR GERM CELL CANCER
  3. BLEOMYCIN SULFATE [Suspect]
     Indication: TESTICULAR GERM CELL CANCER

REACTIONS (1)
  - CEREBROVASCULAR ACCIDENT [None]
